FAERS Safety Report 20977849 (Version 1)
Quarter: 2022Q2

REPORT INFORMATION
  Report Type: Report from Study
  Country: JP (occurrence: JP)
  Receive Date: 20220618
  Receipt Date: 20220618
  Transmission Date: 20220721
  Serious: Yes (Death, Other)
  Sender: FDA-Public Use
  Company Number: JP-ASTRAZENECA-202063603_013120_P_1

PATIENT
  Age: 55 Year
  Sex: Male
  Weight: 72 kg

DRUGS (6)
  1. ABRAXANE [Suspect]
     Active Substance: PACLITAXEL
     Indication: Non-small cell lung cancer
     Route: 065
     Dates: start: 20200318, end: 20200408
  2. PARAPLATIN [Suspect]
     Active Substance: CARBOPLATIN
     Indication: Non-small cell lung cancer
     Route: 065
     Dates: start: 20200318, end: 20200408
  3. IMFINZI [Suspect]
     Active Substance: DURVALUMAB
     Indication: Non-small cell lung cancer
     Route: 042
     Dates: start: 20200513, end: 20200731
  4. SENNOSIDES [Concomitant]
     Active Substance: SENNOSIDES
     Indication: Constipation
     Dosage: 12-24 MG AS REQUIRED WHEN CONSTIPATED
     Route: 048
     Dates: start: 20200320, end: 20210117
  5. AZUNOL [Concomitant]
     Indication: Oropharyngeal pain
     Dosage: DOSE UNKNOWN, SEVERAL TIMES DAILY
     Route: 048
     Dates: start: 20200318
  6. SODIUM GUALENATE MONOHYDRATE [Concomitant]
     Active Substance: SODIUM GUALENATE MONOHYDRATE
     Indication: Oropharyngeal pain
     Dosage: DOSE UNKNOWN, SEVERAL TIMES DAILY
     Route: 065

REACTIONS (3)
  - Malignant neoplasm progression [Fatal]
  - Radiation pneumonitis [Recovering/Resolving]
  - Hyperthyroidism [Recovering/Resolving]

NARRATIVE: CASE EVENT DATE: 20200626
